FAERS Safety Report 15232024 (Version 1)
Quarter: 2018Q3

REPORT INFORMATION
  Report Type: Report from Study
  Country: DE (occurrence: DE)
  Receive Date: 20180802
  Receipt Date: 20180802
  Transmission Date: 20181010
  Serious: Yes (Hospitalization)
  Sender: FDA-Public Use
  Company Number: DE-TEVA-2018-DE-933496

PATIENT
  Age: 79 Year
  Sex: Female
  Weight: 61.2 kg

DRUGS (18)
  1. PACLITAXEL. [Suspect]
     Active Substance: PACLITAXEL
     Dosage: DAILY DOSE: 285 MG MILLGRAM(S) EVERY 3 WEEKS
     Route: 042
     Dates: start: 20150812, end: 20150812
  2. AMLODIPIN [Concomitant]
     Active Substance: AMLODIPINE BESYLATE
     Indication: HYPERTENSION
     Route: 048
  3. PANTOPRAZOL [Concomitant]
     Active Substance: PANTOPRAZOLE SODIUM
     Route: 048
  4. PACLITAXEL. [Suspect]
     Active Substance: PACLITAXEL
     Dosage: DAILY DOSE: 275 MG MILLGRAM(S) EVERY 3 WEEKS
     Route: 042
     Dates: start: 20151126, end: 20151126
  5. NOVALMIN [Concomitant]
     Indication: ARTHRALGIA
     Dosage: FREQUENCY TIME: AS REQUIRED
     Route: 048
     Dates: start: 20151104
  6. PACLITAXEL. [Suspect]
     Active Substance: PACLITAXEL
     Dosage: DAILY DOSE: 280 MG MILLGRAM(S) EVERY 3 WEEKS
     Route: 042
     Dates: start: 20150902, end: 20150902
  7. PACLITAXEL. [Suspect]
     Active Substance: PACLITAXEL
     Dosage: DAILY DOSE: 275 MG MILLGRAM(S) EVERY 3 WEEKS
     Route: 042
     Dates: start: 20151014, end: 20151014
  8. CARBOPLATIN. [Suspect]
     Active Substance: CARBOPLATIN
     Dosage: DAILY DOSE: 330 MG MILLGRAM(S) EVERY 3 WEEKS
     Route: 042
     Dates: start: 20150923, end: 20150923
  9. PACLITAXEL. [Suspect]
     Active Substance: PACLITAXEL
     Dosage: DAILY DOSE: 275 MG MILLGRAM(S) EVERY 3 WEEKS
     Route: 042
     Dates: start: 20151104, end: 20151104
  10. AVASTIN [Suspect]
     Active Substance: BEVACIZUMAB
     Indication: OVARIAN CANCER
     Dosage: DAILY DOSE: 890 MG MILLGRAM(S) EVERY 3 WEEKS
     Route: 042
     Dates: start: 20161026
  11. CARBOPLATIN. [Suspect]
     Active Substance: CARBOPLATIN
     Dosage: DAILY DOSE: 305 MG MILLGRAM(S) EVERY 3 WEEKS
     Route: 042
     Dates: start: 20151014, end: 20151014
  12. CARBOPLATIN. [Suspect]
     Active Substance: CARBOPLATIN
     Dosage: DAILY DOSE: 305 MG MILLGRAM(S) EVERY 3 WEEKS
     Route: 042
     Dates: start: 20151104, end: 20151104
  13. AVASTIN [Suspect]
     Active Substance: BEVACIZUMAB
     Dosage: DAILY DOSE: 885 MG MILLGRAM(S) EVERY 3 WEEKS
     Route: 042
     Dates: start: 20150902
  14. TAVEGIL [Concomitant]
     Active Substance: CLEMASTINE FUMARATE
     Indication: HYPERSENSITIVITY
     Dosage: ON DAY 1 OF CHEMOTHERAPY
     Route: 042
     Dates: start: 20150812
  15. CARBOPLATIN. [Suspect]
     Active Substance: CARBOPLATIN
     Indication: OVARIAN CANCER
     Dosage: DAILY DOSE: 295 MG MILLGRAM(S) EVERY 3 WEEKS
     Route: 042
     Dates: start: 20150812, end: 20150812
  16. CARBOPLATIN. [Suspect]
     Active Substance: CARBOPLATIN
     Dosage: DAILY DOSE: 320 MG MILLGRAM(S) EVERY 3 WEEKS
     Route: 042
     Dates: start: 20151126, end: 20151126
  17. PACLITAXEL. [Suspect]
     Active Substance: PACLITAXEL
     Dosage: DAILY DOSE: 280 MG MILLGRAM(S) EVERY 3 WEEKS
     Route: 042
     Dates: start: 20150923, end: 20150923
  18. CARBOPLATIN. [Suspect]
     Active Substance: CARBOPLATIN
     Dosage: DAILY DOSE: 330 MG MILLGRAM(S) EVERY 3 WEEKS
     Route: 042
     Dates: start: 20150902, end: 20150902

REACTIONS (1)
  - Subileus [Recovered/Resolved]

NARRATIVE: CASE EVENT DATE: 20161109
